FAERS Safety Report 7086237-4 (Version None)
Quarter: 2010Q4

REPORT INFORMATION
  Report Type: 
  Country: None (occurrence: None)
  Receive Date: 20101105
  Receipt Date: 20101029
  Transmission Date: 20110411
  Serious: Yes (Hospitalization)
  Sender: FDA-Public Use
  Company Number: US-AMGEN-USASP2010002364

PATIENT

DRUGS (2)
  1. ENBREL [Suspect]
     Indication: OFF LABEL USE
     Dosage: 50 MG, QWK
     Dates: start: 20000401
  2. ENBREL [Suspect]
     Dosage: 50 MG, QWK
     Dates: start: 20070101

REACTIONS (5)
  - ARTHRALGIA [None]
  - INJECTION SITE PAIN [None]
  - MOBILITY DECREASED [None]
  - MUSCULOSKELETAL PAIN [None]
  - OSTEOARTHRITIS [None]
